FAERS Safety Report 8152360-6 (Version None)
Quarter: 2012Q1

REPORT INFORMATION
  Report Type: 
  Country: None (occurrence: None)
  Receive Date: 20120214
  Receipt Date: 20120206
  Transmission Date: 20120608
  Serious: Yes (Hospitalization)
  Sender: FDA-Public Use
  Company Number: 2012SP007260

PATIENT
  Age: 41 Year
  Sex: Male
  Weight: 77 kg

DRUGS (51)
  1. PEG-INTRON [Suspect]
     Indication: HEPATITIS C
     Dosage: 120 MCG;QW 80 MCG;QW
     Dates: start: 20111208, end: 20111208
  2. PEG-INTRON [Suspect]
     Indication: HEPATITIS C
     Dosage: 120 MCG;QW 80 MCG;QW
     Dates: start: 20111215, end: 20111215
  3. PEG-INTRON [Suspect]
     Indication: HEPATITIS C
     Dosage: 120 MCG;QW 80 MCG;QW
     Dates: start: 20111222, end: 20111222
  4. PEG-INTRON [Suspect]
     Indication: HEPATITIS C
     Dosage: 120 MCG;QW 80 MCG;QW
     Dates: start: 20120126, end: 20120126
  5. PEG-INTRON [Suspect]
     Indication: HEPATITIS C
     Dosage: 120 MCG;QW 80 MCG;QW
     Dates: start: 20111116, end: 20111116
  6. PEG-INTRON [Suspect]
     Indication: HEPATITIS C
     Dosage: 120 MCG;QW 80 MCG;QW
     Dates: start: 20111124, end: 20111124
  7. PEG-INTRON [Suspect]
     Indication: HEPATITIS C
     Dosage: 120 MCG;QW 80 MCG;QW
     Dates: start: 20120105, end: 20120105
  8. PEG-INTRON [Suspect]
     Indication: HEPATITIS C
     Dosage: 120 MCG;QW 80 MCG;QW
     Dates: start: 20120119, end: 20120119
  9. PEG-INTRON [Suspect]
     Indication: HEPATITIS C
     Dosage: 120 MCG;QW 80 MCG;QW
     Dates: start: 20111228, end: 20111228
  10. PEG-INTRON [Suspect]
     Indication: HEPATITIS C
     Dosage: 120 MCG;QW 80 MCG;QW
     Dates: start: 20120202, end: 20120202
  11. PEG-INTRON [Suspect]
     Indication: HEPATITIS C
     Dosage: 120 MCG;QW 80 MCG;QW
     Dates: start: 20111201, end: 20111201
  12. PEG-INTRON [Suspect]
     Indication: HEPATITIS C
     Dosage: 120 MCG;QW 80 MCG;QW
     Dates: start: 20120112, end: 20120112
  13. PEG-INTRON [Suspect]
     Indication: HEPATITIS C
     Dosage: 120 MCG;QW 80 MCG;QW
     Dates: start: 20111110, end: 20111110
  14. FLOMOX [Concomitant]
  15. RIBAVIRIN [Suspect]
     Indication: HEPATITIS C
     Dosage: 1000 MG;QD
     Dates: start: 20111215, end: 20111221
  16. RIBAVIRIN [Suspect]
     Indication: HEPATITIS C
     Dosage: 1000 MG;QD
     Dates: start: 20120113, end: 20120119
  17. RIBAVIRIN [Suspect]
     Indication: HEPATITIS C
     Dosage: 1000 MG;QD
     Dates: start: 20111111, end: 20111116
  18. RIBAVIRIN [Suspect]
     Indication: HEPATITIS C
     Dosage: 1000 MG;QD
     Dates: start: 20111229, end: 20111230
  19. RIBAVIRIN [Suspect]
     Indication: HEPATITIS C
     Dosage: 1000 MG;QD
     Dates: start: 20120105, end: 20120111
  20. RIBAVIRIN [Suspect]
     Indication: HEPATITIS C
     Dosage: 1000 MG;QD
     Dates: start: 20120112, end: 20120118
  21. RIBAVIRIN [Suspect]
     Indication: HEPATITIS C
     Dosage: 1000 MG;QD
     Dates: start: 20120120, end: 20120126
  22. RIBAVIRIN [Suspect]
     Indication: HEPATITIS C
     Dosage: 1000 MG;QD
     Dates: start: 20111117, end: 20111124
  23. RIBAVIRIN [Suspect]
     Indication: HEPATITIS C
     Dosage: 1000 MG;QD
     Dates: start: 20111209, end: 20111215
  24. RIBAVIRIN [Suspect]
     Indication: HEPATITIS C
     Dosage: 1000 MG;QD
     Dates: start: 20111216, end: 20111222
  25. RIBAVIRIN [Suspect]
     Indication: HEPATITIS C
     Dosage: 1000 MG;QD
     Dates: start: 20120119, end: 20120125
  26. RIBAVIRIN [Suspect]
     Indication: HEPATITIS C
     Dosage: 1000 MG;QD
     Dates: start: 20111124, end: 20111130
  27. RIBAVIRIN [Suspect]
     Indication: HEPATITIS C
     Dosage: 1000 MG;QD
     Dates: start: 20111222, end: 20111227
  28. RIBAVIRIN [Suspect]
     Indication: HEPATITIS C
     Dosage: 1000 MG;QD
     Dates: start: 20120127, end: 20120201
  29. RIBAVIRIN [Suspect]
     Indication: HEPATITIS C
     Dosage: 1000 MG;QD
     Dates: start: 20120126, end: 20120201
  30. RIBAVIRIN [Suspect]
     Indication: HEPATITIS C
     Dosage: 1000 MG;QD
     Dates: start: 20111125, end: 20111201
  31. RIBAVIRIN [Suspect]
     Indication: HEPATITIS C
     Dosage: 1000 MG;QD
     Dates: start: 20111231, end: 20111231
  32. RIBAVIRIN [Suspect]
     Indication: HEPATITIS C
     Dosage: 1000 MG;QD
     Dates: start: 20111110, end: 20111110
  33. RIBAVIRIN [Suspect]
     Indication: HEPATITIS C
     Dosage: 1000 MG;QD
     Dates: start: 20111110, end: 20111115
  34. RIBAVIRIN [Suspect]
     Indication: HEPATITIS C
     Dosage: 1000 MG;QD
     Dates: start: 20111201, end: 20111207
  35. RIBAVIRIN [Suspect]
     Indication: HEPATITIS C
     Dosage: 1000 MG;QD
     Dates: start: 20111208, end: 20111214
  36. RIBAVIRIN [Suspect]
     Indication: HEPATITIS C
     Dosage: 1000 MG;QD
     Dates: start: 20111223, end: 20111228
  37. RIBAVIRIN [Suspect]
     Indication: HEPATITIS C
     Dosage: 1000 MG;QD
     Dates: start: 20120106, end: 20120112
  38. RIBAVIRIN [Suspect]
     Indication: HEPATITIS C
     Dosage: 1000 MG;QD
     Dates: start: 20111116, end: 20111123
  39. RIBAVIRIN [Suspect]
     Indication: HEPATITIS C
     Dosage: 1000 MG;QD
     Dates: start: 20111202, end: 20111208
  40. RIBAVIRIN [Suspect]
     Indication: HEPATITIS C
     Dosage: 1000 MG;QD
     Dates: start: 20111228, end: 20120104
  41. ACETAMINOPHEN [Concomitant]
  42. BENZYDAMINE HYDROCHLORIDE [Concomitant]
  43. LYSOZYME CHLORIDE [Concomitant]
  44. RIBAVIRIN [Suspect]
     Indication: HEPATITIS C
     Dates: start: 20111110, end: 20111110
  45. RIBAVIRIN [Suspect]
     Indication: HEPATITIS C
     Dates: start: 20111111, end: 20111208
  46. RIBAVIRIN [Suspect]
     Indication: HEPATITIS C
     Dates: start: 20120106, end: 20120201
  47. RIBAVIRIN [Suspect]
     Indication: HEPATITIS C
     Dates: start: 20111110, end: 20111207
  48. RIBAVIRIN [Suspect]
     Indication: HEPATITIS C
     Dates: start: 20120105, end: 20120201
  49. RIBAVIRIN [Suspect]
     Indication: HEPATITIS C
     Dates: start: 20111209, end: 20111230
  50. RIBAVIRIN [Suspect]
     Indication: HEPATITIS C
     Dates: start: 20111231, end: 20111231
  51. RIBAVIRIN [Suspect]
     Indication: HEPATITIS C
     Dates: start: 20120101, end: 20120104

REACTIONS (5)
  - HYPERPYREXIA [None]
  - ALCOHOL USE [None]
  - LOSS OF CONSCIOUSNESS [None]
  - ELECTROCARDIOGRAM ST-T CHANGE [None]
  - DEHYDRATION [None]
